FAERS Safety Report 4544980-2 (Version None)
Quarter: 2005Q1

REPORT INFORMATION
  Report Type: 
  Country: None (occurrence: None)
  Receive Date: 20050105
  Receipt Date: 20041027
  Transmission Date: 20050727
  Serious: Yes (Other)
  Sender: FDA-Public Use
  Company Number: US-GLAXOSMITHKLINE-A0531559A

PATIENT
  Age: 45 Year
  Sex: Female

DRUGS (2)
  1. COREG [Suspect]
     Indication: HEART BLOCK CONGENITAL
     Route: 048
  2. ENALAPRIL [Concomitant]

REACTIONS (10)
  - ADVERSE EVENT [None]
  - AMNESIA [None]
  - DISORIENTATION [None]
  - FATIGUE [None]
  - GRAND MAL CONVULSION [None]
  - HEART RATE IRREGULAR [None]
  - INCONTINENCE [None]
  - LOSS OF CONSCIOUSNESS [None]
  - SOMNOLENCE [None]
  - TOXICOLOGIC TEST ABNORMAL [None]
